FAERS Safety Report 10174337 (Version 1)
Quarter: 2014Q2

REPORT INFORMATION
  Report Type: Spontaneous
  Country: FR (occurrence: FR)
  Receive Date: 20140515
  Receipt Date: 20140515
  Transmission Date: 20141212
  Serious: Yes (Other)
  Sender: FDA-Public Use
  Company Number: FR-ASTRAZENECA-2014SE31021

PATIENT
  Age: 27362 Day
  Sex: Female

DRUGS (3)
  1. CRESTOR [Suspect]
     Indication: HYPERCHOLESTEROLAEMIA
     Route: 048
     Dates: end: 20140315
  2. CRESTOR [Suspect]
     Indication: HYPERCHOLESTEROLAEMIA
     Route: 048
     Dates: start: 201403, end: 201403
  3. SEVIKAR [Suspect]
     Indication: HYPERTENSION
     Dosage: 20 MG/ 5 MG, UNKNOWN FREQUENCY
     Route: 048
     Dates: end: 20140315

REACTIONS (1)
  - Hepatocellular injury [Recovered/Resolved]
